FAERS Safety Report 12540604 (Version 5)
Quarter: 2016Q3

REPORT INFORMATION
  Report Type: Spontaneous
  Country: US (occurrence: US)
  Receive Date: 20160708
  Receipt Date: 20160805
  Transmission Date: 20161109
  Serious: Yes (Other)
  Sender: FDA-Public Use
  Company Number: US-TEVA-650301USA

PATIENT
  Age: 29 Year
  Sex: Female

DRUGS (4)
  1. ZECUITY [Suspect]
     Active Substance: SUMATRIPTAN SUCCINATE
     Indication: MIGRAINE
     Dosage: 6.5MG/4HR
     Route: 062
     Dates: start: 201601, end: 201601
  2. ZECUITY [Suspect]
     Active Substance: SUMATRIPTAN SUCCINATE
     Route: 062
     Dates: start: 2016, end: 2016
  3. DICLOFENAC [Concomitant]
     Active Substance: DICLOFENAC
     Route: 065
  4. FLEXERIL [Concomitant]
     Active Substance: CYCLOBENZAPRINE HYDROCHLORIDE
     Route: 065

REACTIONS (7)
  - Application site pain [Unknown]
  - Application site vesicles [Unknown]
  - Application site haemorrhage [Unknown]
  - Application site erythema [Recovered/Resolved]
  - Application site rash [Recovered/Resolved]
  - Application site dermatitis [Unknown]
  - Application site scar [Not Recovered/Not Resolved]

NARRATIVE: CASE EVENT DATE: 2016
